FAERS Safety Report 8069176 (Version 2)
Quarter: 2012Q4

REPORT INFORMATION
  Report Type: 
  Country: US (occurrence: US)
  Receive Date: 20110804
  Receipt Date: 20121009
  Transmission Date: 20130627
  Serious: Yes (Hospitalization, Disabling)
  Sender: FDA-Public Use
  Company Number: US-GLAXOSMITHKLINE-A0848142A

PATIENT
  Age: 53 None
  Sex: Male
  Weight: 98 kg

DRUGS (8)
  1. AVANDIA [Suspect]
     Indication: DIABETES MELLITUS
     Dosage: 4MG Twice per day
     Route: 048
     Dates: start: 2002
  2. METOPROLOL [Concomitant]
  3. MAXZIDE [Concomitant]
  4. REMERON [Concomitant]
  5. SEROQUEL [Concomitant]
  6. NEURONTIN [Concomitant]
  7. GLUCOTROL [Concomitant]
  8. ACARBOSE [Concomitant]

REACTIONS (3)
  - Cerebrovascular accident [Not Recovered/Not Resolved]
  - Cardiac failure congestive [Unknown]
  - Myocardial ischaemia [Unknown]
